FAERS Safety Report 5815104-6 (Version None)
Quarter: 2008Q3

REPORT INFORMATION
  Report Type: 
  Country: None (occurrence: None)
  Receive Date: 20080718
  Receipt Date: 20080716
  Transmission Date: 20090109
  Serious: No
  Sender: FDA-Public Use
  Company Number: US-MERCK-0804USA00002

PATIENT
  Age: 17 Month
  Sex: Female
  Weight: 10 kg

DRUGS (2)
  1. SINGULAIR [Suspect]
     Indication: RHINITIS ALLERGIC
     Route: 048
     Dates: start: 20070420, end: 20070601
  2. NASONEX [Concomitant]
     Route: 065
     Dates: start: 20070420

REACTIONS (2)
  - INCORRECT DRUG DOSAGE FORM ADMINISTERED [None]
  - LIVER FUNCTION TEST ABNORMAL [None]
